FAERS Safety Report 16237890 (Version 4)
Quarter: 2019Q2

REPORT INFORMATION
  Report Type: Spontaneous
  Country: US (occurrence: US)
  Receive Date: 20190425
  Receipt Date: 20190621
  Transmission Date: 20190711
  Serious: Yes (Other)
  Sender: FDA-Public Use
  Company Number: US-PFIZER INC-2017401270

PATIENT
  Age: 41 Year
  Sex: Male

DRUGS (1)
  1. BENEFIX [Suspect]
     Active Substance: COAGULATION FACTOR IX RECOMBINANT HUMAN\ISOPROPYL ALCOHOL
     Indication: FACTOR IX DEFICIENCY
     Dosage: 12000 IU, AS NEEDED (EVERY OTHER DAY AND PRN)/(VERY OTHER DAY AND AS NEEDED; DAILYX3 DOSES)
     Route: 042

REACTIONS (2)
  - Haemorrhage [Unknown]
  - Prescribed overdose [Unknown]
